FAERS Safety Report 22323741 (Version 1)
Quarter: 2023Q2

REPORT INFORMATION
  Report Type: Spontaneous
  Country: US (occurrence: None)
  Receive Date: 20230512
  Receipt Date: 20230512
  Transmission Date: 20230722
  Serious: Yes (Death)
  Sender: FDA-Public Use
  Company Number: None

PATIENT
  Age: 75 Year
  Sex: Male
  Weight: 58.97 kg

DRUGS (10)
  1. ZOLPIDEM [Suspect]
     Active Substance: ZOLPIDEM TARTRATE
     Indication: Insomnia
     Dosage: FREQUENCY : DAILY;?
     Route: 048
     Dates: start: 201802, end: 202302
  2. ATORVASTATIN [Concomitant]
     Active Substance: ATORVASTATIN
  3. LOSARTAN [Concomitant]
     Active Substance: LOSARTAN
  4. VITAMINS [Concomitant]
     Active Substance: VITAMINS
  5. LUTEIN [Concomitant]
     Active Substance: LUTEIN
  6. ACETAMINOPHEN XS [Concomitant]
  7. CBD TINCTURE [Concomitant]
  8. MELATONIN [Concomitant]
     Active Substance: MELATONIN
  9. ASPIRIN [Concomitant]
     Active Substance: ASPIRIN
  10. FISH OIL [Concomitant]
     Active Substance: FISH OIL

REACTIONS (6)
  - Suicidal ideation [None]
  - Completed suicide [None]
  - Feeling abnormal [None]
  - Negative thoughts [None]
  - Antisocial behaviour [None]
  - Drug dependence [None]

NARRATIVE: CASE EVENT DATE: 20230207
